FAERS Safety Report 7594985-2 (Version None)
Quarter: 2011Q3

REPORT INFORMATION
  Report Type: 
  Country: None (occurrence: None)
  Receive Date: 20110707
  Receipt Date: 20110628
  Transmission Date: 20111222
  Serious: Yes (Other)
  Sender: FDA-Public Use
  Company Number: CA-SANOFI-AVENTIS-2011SA036856

PATIENT
  Age: 57 Year
  Sex: Female

DRUGS (27)
  1. FERRLECIT [Suspect]
     Route: 042
     Dates: start: 20110211
  2. ACETAMINOPHEN [Concomitant]
     Indication: PAIN
     Route: 048
  3. GRAVOL TAB [Concomitant]
     Dosage: 25-50MG EVERY HEMODIALYSIS AS NECESSARY
     Route: 042
  4. GLUCAGON [Concomitant]
     Dosage: ROUTE: IM/SC;
  5. DIPHENHYDRAMINE HYDROCHLORIDE [Concomitant]
     Dosage: DURING DIALYSIS
     Route: 042
  6. FELODIPINE [Concomitant]
     Indication: PROPHYLAXIS
     Dosage: 4 TIMES A WEEK; TAKE ON NON HEMODIALYSIS DAYS,
     Route: 048
  7. INSULIN LISPRO [Concomitant]
     Indication: BLOOD GLUCOSE ABNORMAL
     Dosage: 1 SLIDING SCALE INSULIN AS DIRECTED BY PHYSICIAN
     Route: 058
  8. IRBESARTAN [Concomitant]
     Indication: BLOOD PRESSURE
     Dosage: ON NON HEMODIALYSIS DAYS
     Route: 048
  9. SEVELAMER [Concomitant]
     Dosage: 1600MG AS DIRECTED BY PHYSICIAN , 1600 MG TWICE DAILY AND 2400 MG EVERY SUPPER
     Route: 048
  10. ARANESP [Concomitant]
     Route: 042
  11. IRBESARTAN [Concomitant]
     Dosage: ON HEMODIALYSIS DAYS
     Route: 048
  12. ASPIRIN [Concomitant]
     Indication: THROMBOSIS PROPHYLAXIS
     Route: 048
  13. CARVEDILOL [Concomitant]
     Route: 048
  14. FERROUS GLUCONATE [Concomitant]
     Route: 048
  15. ALL OTHER THERAPEUTIC PRODUCTS [Concomitant]
     Dosage: TAKE IF BP IS LESS THAN 130 SYSTOLIC. IF BP IS GREATER THAN OR EQUAL TO 130 TO BE HELD.
     Route: 048
  16. RAMIPRIL [Concomitant]
     Route: 048
  17. ATORVASTATIN CALCIUM [Concomitant]
     Route: 048
  18. DOMPERIDONE [Concomitant]
     Indication: GASTRIC DISORDER
     Dosage: TID AC MEALS PLUS AT BEDTIME
     Route: 048
  19. LANTUS [Concomitant]
     Dosage: 7 UNITS IN THE MORNING AND 6 UNITS AT BEDTIME.
     Route: 058
  20. FERRLECIT [Suspect]
     Route: 065
     Dates: start: 20110606
  21. ONE-ALPHA [Concomitant]
     Route: 048
  22. LEVOTHYROXINE SODIUM [Concomitant]
     Route: 048
  23. TYLENOL W/ CODEINE [Concomitant]
     Indication: PAIN
     Dosage: EVREY 3 HOURS AS NEEDED; DURING DIALYSIS
     Route: 048
  24. CARVEDILOL [Concomitant]
     Indication: BLOOD PRESSURE
     Route: 048
  25. CLONIDINE [Concomitant]
     Indication: BLOOD PRESSURE
     Dosage: EVERY HOUR X 2 DOSES MAXIMUM DURING HEMODIALYSIS
     Route: 048
  26. FELODIPINE [Concomitant]
     Indication: BLOOD PRESSURE
     Dosage: 4 TIMES A WEEK; TAKE ON NON HEMODIALYSIS DAYS,
     Route: 048
  27. RAMIPRIL [Concomitant]
     Indication: BLOOD PRESSURE
     Dosage: 5MG IN MORNING AND 10 MG AT BEDTIME.
     Route: 048

REACTIONS (5)
  - PRODUCT QUALITY ISSUE [None]
  - MALAISE [None]
  - BLOOD PRESSURE DECREASED [None]
  - VOMITING [None]
  - FAECAL INCONTINENCE [None]
